FAERS Safety Report 21346024 (Version 8)
Quarter: 2023Q1

REPORT INFORMATION
  Report Type: Report from Study
  Country: CN (occurrence: CN)
  Receive Date: 20220916
  Receipt Date: 20230310
  Transmission Date: 20230418
  Serious: Yes (Other)
  Sender: FDA-Public Use
  Company Number: CN-FOSUNKITE-FOSUNKITE-20220328

PATIENT
  Age: 54 Year
  Sex: Male

DRUGS (4)
  1. AXICABTAGENE CILOLEUCEL [Suspect]
     Active Substance: AXICABTAGENE CILOLEUCEL
     Indication: Non-Hodgkin^s lymphoma
     Dosage: 1.5?10^8 CELLS (NUMBER OF CAR-T CELLS)
     Route: 042
     Dates: start: 20220620, end: 20220620
  2. FLUDARABINE [Concomitant]
     Active Substance: FLUDARABINE PHOSPHATE
     Indication: Lymphodepletion
     Dosage: 50 MG
     Route: 041
     Dates: start: 20220615, end: 20220617
  3. CYCLOPHOSPHAMIDE [Concomitant]
     Active Substance: CYCLOPHOSPHAMIDE
     Indication: Lymphodepletion
     Dosage: 0.95 MG
     Route: 041
     Dates: start: 20220615, end: 20220617
  4. RITUXIMAB [Concomitant]
     Active Substance: RITUXIMAB
     Dosage: 700 MG CYCLE 1
     Route: 042
     Dates: start: 20220528, end: 20220528

REACTIONS (13)
  - Ascites [Recovered/Resolved]
  - Renal failure [Recovered/Resolved]
  - Hypogammaglobulinaemia [Not Recovered/Not Resolved]
  - Hypokalaemia [Recovered/Resolved]
  - Cytokine release syndrome [Not Recovered/Not Resolved]
  - Cytokine increased [Not Recovered/Not Resolved]
  - White blood cell count decreased [Recovered/Resolved]
  - Anaemia [Not Recovered/Not Resolved]
  - Lymphocyte count decreased [Not Recovered/Not Resolved]
  - Neutrophil count decreased [Not Recovered/Not Resolved]
  - Hypofibrinogenaemia [Recovered/Resolved]
  - Blood lactate dehydrogenase increased [Not Recovered/Not Resolved]
  - Platelet count decreased [Not Recovered/Not Resolved]

NARRATIVE: CASE EVENT DATE: 20220620
